FAERS Safety Report 9500132 (Version 2)
Quarter: 2013Q4

REPORT INFORMATION
  Report Type: Report from Study
  Country: US (occurrence: US)
  Receive Date: 20130905
  Receipt Date: 20131108
  Transmission Date: 20140711
  Serious: Yes (Other)
  Sender: FDA-Public Use
  Company Number: PHEH2013US018606

PATIENT
  Sex: Male

DRUGS (2)
  1. AFINITOR [Suspect]
     Dosage: 5 MG, QD
     Route: 048
  2. AFINITOR [Suspect]
     Route: 048

REACTIONS (2)
  - Hypoacusis [Unknown]
  - Diarrhoea [Unknown]
